FAERS Safety Report 23566141 (Version 1)
Quarter: 2024Q1

REPORT INFORMATION
  Report Type: Report from Study
  Country: US (occurrence: US)
  Receive Date: 20240226
  Receipt Date: 20240226
  Transmission Date: 20240410
  Serious: Yes (Death)
  Sender: FDA-Public Use
  Company Number: US-TAIHOP-2024-001628

PATIENT
  Age: 59 Year
  Sex: Male
  Weight: 92.33 kg

DRUGS (1)
  1. LONSURF [Suspect]
     Active Substance: TIPIRACIL HYDROCHLORIDE\TRIFLURIDINE
     Indication: Rectal cancer
     Dosage: CYCLE UNKNOWN.?FORM STRENGTH: 15MG AND 20MG
     Route: 048
     Dates: start: 20240118

REACTIONS (1)
  - Death [Fatal]
